FAERS Safety Report 6657672-0 (Version None)
Quarter: 2010Q1

REPORT INFORMATION
  Report Type: 
  Country: None (occurrence: None)
  Receive Date: 20100330
  Receipt Date: 20100319
  Transmission Date: 20100710
  Serious: Yes (Hospitalization, Disabling, Other)
  Sender: FDA-Public Use
  Company Number: US-BAYER-201017161NA

PATIENT
  Age: 39 Year
  Sex: Female

DRUGS (3)
  1. AVELOX [Suspect]
     Indication: DRUG USE FOR UNKNOWN INDICATION
     Route: 048
  2. ZOLOFT [Concomitant]
  3. VYVANSE [Concomitant]

REACTIONS (9)
  - COMMUNICATION DISORDER [None]
  - DYSARTHRIA [None]
  - HALLUCINATION [None]
  - MOBILITY DECREASED [None]
  - MUSCLE TWITCHING [None]
  - MYDRIASIS [None]
  - PANIC ATTACK [None]
  - PARAESTHESIA [None]
  - VERTIGO [None]
